FAERS Safety Report 9685155 (Version 1)
Quarter: 2013Q4

REPORT INFORMATION
  Report Type: Spontaneous
  Country: US (occurrence: None)
  Receive Date: 20131111
  Receipt Date: 20131111
  Transmission Date: 20140711
  Serious: Yes (Other)
  Sender: FDA-Public Use
  Company Number: None

PATIENT
  Age: 3 Year
  Sex: Male

DRUGS (1)
  1. ALBUTEROL SULFATE [Suspect]
     Indication: ASTHMA
     Dosage: 1 VIAL AS NEEDED INHALATION
     Route: 055
     Dates: start: 20130928, end: 20131031

REACTIONS (1)
  - Pneumonia [None]
